FAERS Safety Report 11471895 (Version 1)
Quarter: 2015Q3

REPORT INFORMATION
  Report Type: Spontaneous
  Country: CH (occurrence: CH)
  Receive Date: 20150908
  Receipt Date: 20150908
  Transmission Date: 20151125
  Serious: Yes (Life-Threatening, Hospitalization)
  Sender: FDA-Public Use
  Company Number: CH-JNJFOC-20150820997

PATIENT
  Age: 55 Year
  Sex: Male
  Weight: 97 kg

DRUGS (6)
  1. VALPROATE SODIUM. [Suspect]
     Active Substance: VALPROATE SODIUM
     Indication: SCHIZOPHRENIA, PARANOID TYPE
     Route: 048
     Dates: end: 20150324
  2. RISPERDAL CONSTA [Suspect]
     Active Substance: RISPERIDONE
     Indication: SCHIZOPHRENIA, RESIDUAL TYPE
     Route: 030
     Dates: end: 20150317
  3. QUILONORM RETARD [Suspect]
     Active Substance: LITHIUM CARBONATE
     Indication: SCHIZOPHRENIA, RESIDUAL TYPE
     Route: 048
     Dates: end: 20150324
  4. QUILONORM RETARD [Suspect]
     Active Substance: LITHIUM CARBONATE
     Indication: SCHIZOPHRENIA, RESIDUAL TYPE
     Route: 048
     Dates: start: 20150328
  5. ELTROXIN [Concomitant]
     Active Substance: LEVOTHYROXINE
     Indication: HYPERTHYROIDISM
     Route: 048
  6. CO DIOVAN [Concomitant]
     Active Substance: HYDROCHLOROTHIAZIDE\VALSARTAN
     Indication: HYPERTENSION
     Dosage: 1 DF= 1 TABLET WITH VALSARTAN/HYDROCHLOROTHIAZIDE 160/12.5 MG
     Route: 048
     Dates: end: 20150317

REACTIONS (6)
  - Somnolence [Recovered/Resolved]
  - General physical health deterioration [Unknown]
  - Pneumonia [Unknown]
  - Toxicity to various agents [Recovered/Resolved]
  - Hyperreflexia [Recovered/Resolved]
  - Hypernatraemia [Recovered/Resolved]

NARRATIVE: CASE EVENT DATE: 20150317
